FAERS Safety Report 22591613 (Version 1)
Quarter: 2023Q2

REPORT INFORMATION
  Report Type: Spontaneous
  Country: PL (occurrence: PL)
  Receive Date: 20230612
  Receipt Date: 20230612
  Transmission Date: 20230721
  Serious: Yes (Other)
  Sender: FDA-Public Use
  Company Number: PL-002147023-NVSC2023PL125526

PATIENT

DRUGS (9)
  1. RUXOLITINIB [Suspect]
     Active Substance: RUXOLITINIB
     Indication: Myelofibrosis
     Dosage: 10 MG, BID (TWICE A DAY)
     Route: 065
     Dates: start: 20221205
  2. RUXOLITINIB [Suspect]
     Active Substance: RUXOLITINIB
     Dosage: 5 MG, BID (TWICE DAILY) (FOR ABOUT 14 DAYS)
     Route: 065
  3. RUXOLITINIB [Suspect]
     Active Substance: RUXOLITINIB
     Dosage: 15 MG (10+5 MG)
     Route: 065
  4. RUXOLITINIB [Suspect]
     Active Substance: RUXOLITINIB
     Dosage: 10 MG, BID (2X10 MG)
     Route: 065
  5. RUXOLITINIB [Suspect]
     Active Substance: RUXOLITINIB
     Dosage: 15 MG (10+5 MG)
     Route: 065
  6. HYDROXYUREA [Concomitant]
     Active Substance: HYDROXYUREA
     Indication: Product used for unknown indication
     Dosage: 2.5 G (7 DAYS)
     Route: 065
  7. HYDROXYUREA [Concomitant]
     Active Substance: HYDROXYUREA
     Dosage: 1-1.5 G, QD (DAILY)
     Route: 065
  8. HYDROXYUREA [Concomitant]
     Active Substance: HYDROXYUREA
     Dosage: 500 MG, Q2W (TWICE WEEKLY)
     Route: 065
  9. HYDROXYUREA [Concomitant]
     Active Substance: HYDROXYUREA
     Dosage: UNK, QW (2-3 TABLETS A WEEK)
     Route: 065

REACTIONS (8)
  - Spinal pain [Unknown]
  - Glomerular filtration rate decreased [Unknown]
  - Headache [Recovered/Resolved]
  - Cardiac failure [Unknown]
  - Respiratory tract infection [Unknown]
  - Blood creatinine increased [Recovering/Resolving]
  - Full blood count abnormal [Recovering/Resolving]
  - Herpes zoster [Unknown]
